FAERS Safety Report 5783078-2 (Version None)
Quarter: 2008Q2

REPORT INFORMATION
  Report Type: 
  Country: None (occurrence: None)
  Receive Date: 20080624
  Receipt Date: 20080613
  Transmission Date: 20081010
  Serious: Yes (Life-Threatening)
  Sender: FDA-Public Use
  Company Number: BE-AMGEN-US273373

PATIENT
  Sex: Female

DRUGS (2)
  1. ENBREL [Suspect]
     Indication: PSORIASIS
     Dosage: NOT PROVIDED
     Route: 058
     Dates: start: 20070601
  2. ENBREL [Suspect]
     Dosage: NOT PROVIDED
     Route: 058
     Dates: start: 20080101

REACTIONS (2)
  - ARRHYTHMIA [None]
  - CARDIAC ARREST [None]
